FAERS Safety Report 11454070 (Version 5)
Quarter: 2016Q3

REPORT INFORMATION
  Report Type: Report from Study
  Country: CA (occurrence: CA)
  Receive Date: 20150903
  Receipt Date: 20160811
  Transmission Date: 20161109
  Serious: Yes (Hospitalization, Other)
  Sender: FDA-Public Use
  Company Number: CA-JNJFOC-20150824309

PATIENT
  Age: 39 Year
  Sex: Male
  Weight: 118 kg

DRUGS (6)
  1. REMICADE [Suspect]
     Active Substance: INFLIXIMAB
     Indication: CROHN^S DISEASE
     Route: 042
     Dates: start: 20080112, end: 20160322
  2. REMICADE [Suspect]
     Active Substance: INFLIXIMAB
     Indication: CROHN^S DISEASE
     Route: 042
     Dates: start: 20071012
  3. REMICADE [Suspect]
     Active Substance: INFLIXIMAB
     Indication: CROHN^S DISEASE
     Route: 042
     Dates: start: 20071207
  4. ACCOLATE [Concomitant]
     Active Substance: ZAFIRLUKAST
     Indication: PREMEDICATION
     Route: 048
  5. HYDROXYZINE [Concomitant]
     Active Substance: HYDROXYZINE\HYDROXYZINE HYDROCHLORIDE
     Indication: PREMEDICATION
     Route: 048
  6. REMICADE [Suspect]
     Active Substance: INFLIXIMAB
     Indication: CROHN^S DISEASE
     Route: 042
     Dates: start: 20071007

REACTIONS (11)
  - Viral upper respiratory tract infection [Not Recovered/Not Resolved]
  - Rash [Unknown]
  - Ear infection viral [Not Recovered/Not Resolved]
  - Off label use [Unknown]
  - Drug prescribing error [Unknown]
  - Drug effect decreased [Unknown]
  - Pyrexia [Unknown]
  - Infection [Unknown]
  - Skin infection [Unknown]
  - Chills [Unknown]
  - Pain in jaw [Unknown]

NARRATIVE: CASE EVENT DATE: 20080112
